FAERS Safety Report 6237271-5 (Version None)
Quarter: 2009Q2

REPORT INFORMATION
  Report Type: 
  Country: None (occurrence: None)
  Receive Date: 20090619
  Receipt Date: 20090610
  Transmission Date: 20091009
  Serious: Yes (Hospitalization)
  Sender: FDA-Public Use
  Company Number: US-MYLANLABS-2009S1010320

PATIENT
  Age: 71 Year
  Sex: Female
  Weight: 105.69 kg

DRUGS (20)
  1. FENTANYL TRANSDERMAL SYSTEM [Suspect]
     Indication: BACK PAIN
     Dosage: CHANGED PATCHES Q3D
     Route: 062
     Dates: start: 20061204, end: 20081101
  2. FENTANYL TRANSDERMAL SYSTEM [Suspect]
     Indication: ARTHRALGIA
     Dosage: CHANGED PATCHES Q3D
     Route: 062
     Dates: start: 20061204, end: 20081101
  3. FOLIC ACID [Concomitant]
     Route: 048
  4. AVAPRO [Concomitant]
     Indication: BLOOD PRESSURE INCREASED
     Route: 048
  5. LASIX [Concomitant]
     Indication: FLUID RETENTION
     Route: 048
  6. LOVASTATIN [Concomitant]
     Indication: BLOOD CHOLESTEROL INCREASED
     Route: 048
  7. VITAMIN D [Concomitant]
     Route: 042
  8. VITAMIN K [Concomitant]
     Route: 030
  9. DIFLUNISAL [Concomitant]
     Route: 048
  10. DIAZEPAM [Concomitant]
     Route: 048
  11. GLIPIZIDE [Concomitant]
     Route: 048
  12. MECLIZINE [Concomitant]
     Indication: DIZZINESS
     Route: 048
  13. LEVOTHYROXINE SODIUM [Concomitant]
     Route: 048
  14. ARICEPT [Concomitant]
     Indication: MEMORY IMPAIRMENT
     Route: 048
  15. GABAPENTIN [Concomitant]
     Route: 048
  16. SEROQUEL [Concomitant]
     Route: 048
  17. ZEMPLAR [Concomitant]
     Indication: RENAL DISORDER
  18. OMEPRAZOLE [Concomitant]
     Indication: ABDOMINAL DISCOMFORT
  19. OXYCODONE HCL [Concomitant]
     Indication: PAIN
     Route: 048
  20. LIDODERM [Concomitant]
     Route: 062

REACTIONS (4)
  - DYSARTHRIA [None]
  - DYSPNOEA [None]
  - EYE DISORDER [None]
  - INAPPROPRIATE SCHEDULE OF DRUG ADMINISTRATION [None]
